FAERS Safety Report 7605678-7 (Version None)
Quarter: 2011Q3

REPORT INFORMATION
  Report Type: 
  Country: None (occurrence: None)
  Receive Date: 20110705
  Receipt Date: 20110617
  Transmission Date: 20111222
  Serious: Yes (Death, Other)
  Sender: FDA-Public Use
  Company Number: 2011MA007728

PATIENT
  Age: 89 Year
  Sex: Male

DRUGS (1)
  1. FEVERALL [Suspect]
     Indication: OVERDOSE

REACTIONS (3)
  - HYPOXIA [None]
  - HYPOTENSION [None]
  - OVERDOSE [None]
